FAERS Safety Report 6881459-7 (Version None)
Quarter: 2010Q3

REPORT INFORMATION
  Report Type: 
  Country: None (occurrence: None)
  Receive Date: 20100728
  Receipt Date: 20100728
  Transmission Date: 20110219
  Serious: Yes (Life-Threatening, Hospitalization)
  Sender: FDA-Public Use
  Company Number: None

PATIENT
  Age: 20 Year
  Sex: Male
  Weight: 58.9 kg

DRUGS (1)
  1. IBUPROFEN [Suspect]
     Dosage: 600 MG PO
     Route: 048

REACTIONS (1)
  - INCORRECT DOSE ADMINISTERED [None]
